FAERS Safety Report 14321314 (Version 1)
Quarter: 2017Q4

REPORT INFORMATION
  Report Type: Spontaneous
  Country: CN (occurrence: CN)
  Receive Date: 20171223
  Receipt Date: 20171223
  Transmission Date: 20180321
  Serious: Yes (Other)
  Sender: FDA-Public Use
  Company Number: PHHY2017CN186956

PATIENT
  Age: 49 Year
  Sex: Female

DRUGS (1)
  1. NILOTINIB [Suspect]
     Active Substance: NILOTINIB
     Indication: PRODUCT USED FOR UNKNOWN INDICATION
     Dosage: 600 MG, UNK
     Route: 065
     Dates: start: 20150726, end: 20171212

REACTIONS (4)
  - Menorrhagia [Unknown]
  - Throat irritation [Unknown]
  - Oropharyngeal blistering [Unknown]
  - Oropharyngeal pain [Unknown]
